FAERS Safety Report 10030918 (Version 2)
Quarter: 2014Q1

REPORT INFORMATION
  Report Type: Spontaneous
  Country: US (occurrence: US)
  Receive Date: 20140323
  Receipt Date: 20140323
  Transmission Date: 20141002
  Serious: No
  Sender: FDA-Public Use
  Company Number: US-ALLERGAN-1315903US

PATIENT
  Age: 31 Year
  Sex: Female

DRUGS (2)
  1. LATISSE 0.03% [Suspect]
     Indication: GROWTH OF EYELASHES
     Dosage: UNK - ONE DOSE
     Dates: start: 20130913, end: 20130913
  2. LATISSE 0.03% [Suspect]
     Dosage: UNK

REACTIONS (3)
  - Eye inflammation [Unknown]
  - Ocular hyperaemia [Unknown]
  - Eye pruritus [Recovered/Resolved]
